FAERS Safety Report 4720994-4 (Version None)
Quarter: 2005Q3

REPORT INFORMATION
  Report Type: 
  Country: None (occurrence: None)
  Receive Date: 20050719
  Receipt Date: 20041021
  Transmission Date: 20060218
  Serious: Yes (Other)
  Sender: FDA-Public Use
  Company Number: 2004240941US

PATIENT
  Sex: Female
  Weight: 58.5 kg

DRUGS (3)
  1. CELEBREX [Suspect]
     Indication: BACK PAIN
     Dosage: ORAL
     Route: 048
     Dates: start: 20020101, end: 20020101
  2. RESTORIL [Concomitant]
  3. VITAMINS [Concomitant]

REACTIONS (1)
  - BLOOD URINE PRESENT [None]
